FAERS Safety Report 6054401-9 (Version None)
Quarter: 2009Q1

REPORT INFORMATION
  Report Type: 
  Country: None (occurrence: None)
  Receive Date: 20090123
  Receipt Date: 20090123
  Transmission Date: 20090719
  Serious: Yes (Other)
  Sender: FDA-Public Use
  Company Number: None

PATIENT
  Sex: Male
  Weight: 65 kg

DRUGS (9)
  1. XANAX [Suspect]
     Dosage: 0.25 MG TABLET 0.25 MG QD ORAL
     Route: 048
     Dates: start: 20070621, end: 20090122
  2. KLONOPIN [Concomitant]
  3. LIPITOR [Concomitant]
  4. LISINOPRIL [Concomitant]
  5. RAZADYNE ER [Concomitant]
  6. SIMVASTATIN [Concomitant]
  7. SINEMET [Concomitant]
  8. VIAGRA [Concomitant]
  9. ZOLOFT [Concomitant]

REACTIONS (1)
  - MENTAL STATUS CHANGES [None]
